FAERS Safety Report 18377081 (Version 1)
Quarter: 2020Q4

REPORT INFORMATION
  Report Type: Report from Study
  Country: CH (occurrence: CH)
  Receive Date: 20201013
  Receipt Date: 20201013
  Transmission Date: 20210114
  Serious: Yes (Hospitalization, Other)
  Sender: FDA-Public Use
  Company Number: CH-INCYTE CORPORATION-2018IN006899

PATIENT

DRUGS (23)
  1. JAKAVI [Suspect]
     Active Substance: RUXOLITINIB
     Dosage: 15 OT, UNK
     Route: 048
     Dates: start: 20180226, end: 201803
  2. JAKAVI [Suspect]
     Active Substance: RUXOLITINIB
     Dosage: 5 OT, UNK
     Route: 048
     Dates: start: 20180620, end: 20180808
  3. PANTOPRAZOL [Concomitant]
     Active Substance: PANTOPRAZOLE SODIUM
     Indication: PRODUCT USED FOR UNKNOWN INDICATION
     Dosage: 40 OT
     Route: 065
     Dates: start: 2000
  4. JAKAVI [Suspect]
     Active Substance: RUXOLITINIB
     Dosage: 20 OT
     Route: 065
     Dates: start: 201803, end: 20180325
  5. JAKAVI [Suspect]
     Active Substance: RUXOLITINIB
     Dosage: 10 OT, UKN
     Route: 048
     Dates: start: 20180809, end: 20181003
  6. DAFALGAN [Concomitant]
     Active Substance: ACETAMINOPHEN
     Indication: SPINAL OSTEOARTHRITIS
     Dosage: 1 OT, UNK
     Route: 065
     Dates: start: 20180618, end: 20180620
  7. NOVALGIN (METAMIZOLE SODIUM) [Concomitant]
     Active Substance: METAMIZOLE SODIUM
     Indication: PAIN IN EXTREMITY
  8. CARDIAX ASS [Concomitant]
     Active Substance: ASPIRIN
     Indication: PERIPHERAL ARTERIAL OCCLUSIVE DISEASE
     Dosage: 100 OT
     Route: 065
     Dates: start: 20180619, end: 20180809
  9. JAKAVI [Suspect]
     Active Substance: RUXOLITINIB
     Dosage: 10 OT, UNK
     Route: 048
     Dates: start: 20180406, end: 20180619
  10. RELVAR [Concomitant]
     Active Substance: FLUTICASONE FUROATE\VILANTEROL TRIFENATATE
     Indication: PRODUCT USED FOR UNKNOWN INDICATION
     Dosage: 1 OT, UNK
     Route: 065
     Dates: start: 2000, end: 20180809
  11. NEBIVOLOL. [Concomitant]
     Active Substance: NEBIVOLOL
     Dosage: 5 OT, UNK
     Route: 065
     Dates: start: 20190208, end: 20190510
  12. JAKAVI [Suspect]
     Active Substance: RUXOLITINIB
     Dosage: 10 OT, UNK
     Route: 048
     Dates: start: 20180326, end: 20180403
  13. JAKAVI [Suspect]
     Active Substance: RUXOLITINIB
     Indication: POLYCYTHAEMIA VERA
     Dosage: 5 OT, UNK
     Route: 048
     Dates: start: 20180205, end: 20180214
  14. JAKAVI [Suspect]
     Active Substance: RUXOLITINIB
     Dosage: 20 OT, UKN
     Route: 065
     Dates: start: 20181004, end: 20190913
  15. TRAMADOL. [Concomitant]
     Active Substance: TRAMADOL
     Indication: SPINAL OSTEOARTHRITIS
     Dosage: 40 OT, UNK
     Route: 065
     Dates: start: 20180215, end: 20180809
  16. TRAMADOL. [Concomitant]
     Active Substance: TRAMADOL
     Indication: PAIN IN EXTREMITY
  17. RIVAROXABAN [Concomitant]
     Active Substance: RIVAROXABAN
     Indication: ATRIAL FIBRILLATION
     Dosage: 20 OT, UNK
     Route: 065
     Dates: start: 201710
  18. NOVALGIN (METAMIZOLE SODIUM) [Concomitant]
     Active Substance: METAMIZOLE SODIUM
     Indication: SPINAL CORD DISORDER
     Dosage: 500 OT, UNK
     Route: 065
     Dates: start: 2000, end: 20181004
  19. ATORVASTATIN [Concomitant]
     Active Substance: ATORVASTATIN
     Indication: PERIPHERAL ARTERIAL OCCLUSIVE DISEASE
     Dosage: 40 OT, UNK
     Route: 065
     Dates: start: 20180326, end: 20180809
  20. NEBIVOLOL. [Concomitant]
     Active Substance: NEBIVOLOL
     Indication: HYPERTENSION
     Dosage: 2.5 OT, UNK
     Route: 065
     Dates: start: 20180618, end: 20180809
  21. DUODART [Concomitant]
     Active Substance: DUTASTERIDE\TAMSULOSIN
     Indication: BENIGN PROSTATIC HYPERPLASIA
     Dosage: 0.5 OT
     Route: 065
     Dates: start: 2000
  22. JAKAVI [Suspect]
     Active Substance: RUXOLITINIB
     Dosage: 10 OT, UNK
     Route: 048
     Dates: start: 20180215, end: 20180225
  23. CANDESARTAN. [Concomitant]
     Active Substance: CANDESARTAN
     Indication: HYPERTENSION
     Dosage: 16 OT, UNK
     Route: 065
     Dates: start: 2015, end: 20190208

REACTIONS (14)
  - Dizziness [Recovered/Resolved]
  - Tremor [Recovered/Resolved]
  - Nausea [Recovered/Resolved]
  - Cystitis [Recovered/Resolved]
  - Pain in extremity [Recovered/Resolved]
  - Diarrhoea [Recovered/Resolved]
  - Oedema peripheral [Recovered/Resolved]
  - Asthenia [Recovered/Resolved]
  - Acute kidney injury [Recovered/Resolved]
  - Dizziness [Recovered/Resolved]
  - Night sweats [Not Recovered/Not Resolved]
  - Chest discomfort [Recovered/Resolved]
  - Cystitis [Recovered/Resolved]
  - Wound complication [Recovered/Resolved]

NARRATIVE: CASE EVENT DATE: 20180221
